FAERS Safety Report 4578296-5 (Version None)
Quarter: 2005Q1

REPORT INFORMATION
  Report Type: 
  Country: None (occurrence: None)
  Receive Date: 20050209
  Receipt Date: 20050127
  Transmission Date: 20050727
  Serious: Yes (Hospitalization)
  Sender: FDA-Public Use
  Company Number: HQWYE948528JAN05

PATIENT
  Age: 81 Year
  Sex: Female
  Weight: 64.47 kg

DRUGS (9)
  1. EFFEXOR XR [Suspect]
     Indication: DEPRESSION
     Dosage: 75 MG 2X PER 1 DAY, ORAL; 37.5 MG 1X PER 1 TOT, ORAL
     Route: 048
     Dates: start: 20050101, end: 20050101
  2. EFFEXOR XR [Suspect]
     Indication: DEPRESSION
     Dosage: 75 MG 2X PER 1 DAY, ORAL; 37.5 MG 1X PER 1 TOT, ORAL
     Route: 048
     Dates: start: 19990101, end: 20050108
  3. SINEMET [Concomitant]
  4. SYNTHROID [Concomitant]
  5. PRILOSEC [Concomitant]
  6. ATENOLOL [Concomitant]
  7. COZAAR [Concomitant]
  8. METOPROLOL TARTRATE [Concomitant]
  9. PREVACID [Concomitant]

REACTIONS (6)
  - CHEST PAIN [None]
  - CONFUSIONAL STATE [None]
  - DEPRESSED LEVEL OF CONSCIOUSNESS [None]
  - DRUG WITHDRAWAL SYNDROME [None]
  - HYPOTENSION [None]
  - STATUS EPILEPTICUS [None]
